FAERS Safety Report 8050817-X (Version None)
Quarter: 2012Q1

REPORT INFORMATION
  Report Type: 
  Country: None (occurrence: None)
  Receive Date: 20120117
  Receipt Date: 20120104
  Transmission Date: 20120608
  Serious: Yes (Hospitalization)
  Sender: FDA-Public Use
  Company Number: US-OPTIMER-20120001

PATIENT

DRUGS (6)
  1. PLAVIX [Concomitant]
  2. DIFICID [Suspect]
     Indication: CLOSTRIDIAL INFECTION
     Dosage: 200 MG, BID X 10 DAYS
     Route: 048
     Dates: start: 20110701, end: 20110101
  3. DIFICID [Suspect]
     Dosage: 200 MG, QOD
     Route: 048
     Dates: start: 20111201
  4. DIFICID [Suspect]
     Dosage: 200 MG, BID X 10 DAYS
     Route: 048
     Dates: start: 20111101, end: 20110101
  5. DIFICID [Suspect]
     Indication: ANTIBIOTIC PROPHYLAXIS
     Dosage: 200 MG, BID X 10 DAYS
     Route: 048
     Dates: start: 20110901, end: 20110101
  6. VYTORIN [Concomitant]

REACTIONS (9)
  - COLONOSCOPY ABNORMAL [None]
  - CLOSTRIDIAL INFECTION [None]
  - DISEASE RECURRENCE [None]
  - OFF LABEL USE [None]
  - DIARRHOEA [None]
  - DECREASED APPETITE [None]
  - NAUSEA [None]
  - ASTHENIA [None]
  - WEIGHT DECREASED [None]
